FAERS Safety Report 10956095 (Version 1)
Quarter: 2015Q1

REPORT INFORMATION
  Report Type: Spontaneous
  Country: US (occurrence: None)
  Receive Date: 20150226
  Receipt Date: 20150226
  Transmission Date: 20150721
  Serious: Yes (Other)
  Sender: FDA-Public Use
  Company Number: TPA2013A01172

PATIENT
  Age: 68 Year
  Sex: Male

DRUGS (4)
  1. GLYBURIDE/METFORMIN (METFORMIN HYDROCHLORIDE, GLIB ENCLAMIDE) [Concomitant]
  2. ACTOPLUS MET [Suspect]
     Active Substance: METFORMIN HYDROCHLORIDE\PIOGLITAZONE HYDROCHLORIDE
     Indication: TYPE 2 DIABETES MELLITUS
     Dates: start: 200707, end: 201204
  3. AVANDIA (ROSIGLITAZONE MALEATE) [Concomitant]
  4. METFORMIN HCL (METFORMIN HYDROCHLORIDE) [Concomitant]

REACTIONS (1)
  - Bladder cancer stage III [None]

NARRATIVE: CASE EVENT DATE: 201102
